FAERS Safety Report 7332263-7 (Version None)
Quarter: 2011Q1

REPORT INFORMATION
  Report Type: 
  Country: None (occurrence: None)
  Receive Date: 20110223
  Receipt Date: 20110211
  Transmission Date: 20110831
  Serious: Yes (Other)
  Sender: FDA-Public Use
  Company Number: 1000017538

PATIENT
  Age: 88 Year
  Sex: Female

DRUGS (7)
  1. COAPROVEL (IRBESARTAN, HYDROCHLOROTHIAZIDE) (TABLETS) (IRBESARTAN, HYD [Concomitant]
  2. TORASEMIDE (TORASEMIDE) (TABLETS) (TORASEMIDE) [Concomitant]
  3. MEMANTINE [Suspect]
     Indication: DEMENTIA ALZHEIMER'S TYPE
     Dosage: SEE IMAGE
     Route: 048
     Dates: start: 20100925, end: 20101001
  4. MEMANTINE [Suspect]
     Indication: DEMENTIA ALZHEIMER'S TYPE
     Dosage: SEE IMAGE
     Route: 048
     Dates: start: 20101002, end: 20101008
  5. MEMANTINE [Suspect]
     Indication: DEMENTIA ALZHEIMER'S TYPE
     Dosage: SEE IMAGE
     Route: 048
     Dates: start: 20101009, end: 20101015
  6. MEMANTINE [Suspect]
     Indication: DEMENTIA ALZHEIMER'S TYPE
     Dosage: SEE IMAGE
     Route: 048
     Dates: start: 20101016, end: 20101017
  7. TEMESTA (LORAZEPAM) (1 MILLIGRAM, TABLETS) (LORAZEPAM) [Concomitant]

REACTIONS (1)
  - GRAND MAL CONVULSION [None]
